FAERS Safety Report 10329794 (Version 1)
Quarter: 2014Q3

REPORT INFORMATION
  Report Type: Report from Study
  Country: BR (occurrence: BR)
  Receive Date: 20140721
  Receipt Date: 20140721
  Transmission Date: 20150326
  Serious: Yes (Death, Hospitalization)
  Sender: FDA-Public Use
  Company Number: BR-US-EMD SERONO, INC.-7307754

PATIENT
  Age: 44 Year
  Sex: Female

DRUGS (7)
  1. PROLOL                             /00030002/ [Concomitant]
     Indication: PRODUCT USED FOR UNKNOWN INDICATION
  2. REBIF [Suspect]
     Active Substance: INTERFERON BETA-1A
     Indication: RELAPSING-REMITTING MULTIPLE SCLEROSIS
     Route: 058
     Dates: start: 20081226, end: 20140630
  3. LOSARTAN [Concomitant]
     Active Substance: LOSARTAN
     Indication: PRODUCT USED FOR UNKNOWN INDICATION
  4. NEOVLAR [Concomitant]
     Indication: CONTRACEPTION
  5. AMFEPRAMONE [Concomitant]
     Active Substance: DIETHYLPROPION
     Indication: PRODUCT USED FOR UNKNOWN INDICATION
  6. ARADOIS [Concomitant]
     Active Substance: LOSARTAN POTASSIUM
     Indication: PRODUCT USED FOR UNKNOWN INDICATION
  7. ATENOLOL. [Concomitant]
     Active Substance: ATENOLOL
     Indication: PRODUCT USED FOR UNKNOWN INDICATION

REACTIONS (4)
  - Motor dysfunction [Unknown]
  - Pneumonia [Unknown]
  - Cardio-respiratory arrest [Fatal]
  - Impaired reasoning [Unknown]

NARRATIVE: CASE EVENT DATE: 201406
